FAERS Safety Report 7642546-9 (Version None)
Quarter: 2011Q3

REPORT INFORMATION
  Report Type: 
  Country: None (occurrence: None)
  Receive Date: 20110728
  Receipt Date: 20110719
  Transmission Date: 20111222
  Serious: Yes (Other)
  Sender: FDA-Public Use
  Company Number: SN-B.I. PHARMACEUTICALS,INC./RIDGEFIELD-2011-DE-04023GD

PATIENT
  Sex: Male

DRUGS (3)
  1. ZIDOVUDINE [Suspect]
     Indication: HIV INFECTION
  2. NEVIRAPINE [Suspect]
     Indication: HIV INFECTION
  3. LAMIVUDINE [Suspect]
     Indication: HIV INFECTION

REACTIONS (1)
  - LIVER DISORDER [None]
